FAERS Safety Report 8355089-4 (Version None)
Quarter: 2012Q2

REPORT INFORMATION
  Report Type: 
  Country: None (occurrence: None)
  Receive Date: 20120511
  Receipt Date: 20120502
  Transmission Date: 20120825
  Serious: Yes (Hospitalization, Other)
  Sender: FDA-Public Use
  Company Number: CA-ABBOTT-10P-028-0648995-02

PATIENT
  Sex: Male
  Weight: 64 kg

DRUGS (20)
  1. HUMIRA [Suspect]
     Indication: CROHN'S DISEASE
     Route: 058
     Dates: start: 20090107, end: 20100120
  2. PREDNISONE TAB [Concomitant]
     Route: 048
     Dates: start: 20091217, end: 20091230
  3. PREDNISONE TAB [Concomitant]
     Route: 048
     Dates: start: 20100826, end: 20100905
  4. SOLU-MEDROL [Concomitant]
     Indication: CROHN'S DISEASE
  5. PREDNISONE TAB [Concomitant]
     Route: 048
     Dates: start: 20091203, end: 20091216
  6. SOLU-MEDROL [Concomitant]
     Indication: INTESTINAL OBSTRUCTION
     Dates: start: 20090813, end: 20090814
  7. CIPROFLOXACIN HCL [Concomitant]
     Indication: CROHN'S DISEASE
     Dates: start: 20080301, end: 20110301
  8. DIAZEPAM [Concomitant]
     Indication: SIGMOIDOSCOPY
  9. HUMIRA [Suspect]
     Route: 058
     Dates: start: 20100602
  10. BUDESONIDE [Concomitant]
     Indication: CROHN'S DISEASE
     Dosage: PHYSICIAN ORDERED DISCONTINUATION
     Dates: end: 20081001
  11. AZATHIOPRINE [Concomitant]
     Indication: CROHN'S DISEASE
     Dates: start: 19960101, end: 20091202
  12. PREDNISONE TAB [Concomitant]
     Route: 048
     Dates: start: 20100907, end: 20101004
  13. PREDNISONE TAB [Concomitant]
     Route: 048
     Dates: start: 20101005, end: 20101101
  14. FLAGYL [Concomitant]
     Indication: ANAL ABSCESS
     Dates: start: 20091121, end: 20100701
  15. MORPHINE [Concomitant]
     Indication: PAIN
     Dates: start: 20080901, end: 20110515
  16. PREDNISONE TAB [Concomitant]
     Indication: CROHN'S DISEASE
     Route: 048
     Dates: end: 20081001
  17. PREDNISONE TAB [Concomitant]
     Route: 048
     Dates: start: 20101102, end: 20101129
  18. AZATHIOPRINE [Concomitant]
     Dates: start: 20091203
  19. MORPHINE [Concomitant]
     Indication: CROHN'S DISEASE
  20. DIAZEPAM [Concomitant]
     Indication: SEDATION
     Dates: start: 20091118, end: 20091118

REACTIONS (2)
  - FISTULA [None]
  - ANAL ABSCESS [None]
